FAERS Safety Report 12130431 (Version 10)
Quarter: 2017Q1

REPORT INFORMATION
  Report Type: Spontaneous
  Country: US (occurrence: US)
  Receive Date: 20160301
  Receipt Date: 20170210
  Transmission Date: 20170428
  Serious: Yes (Other)
  Sender: FDA-Public Use
  Company Number: PHEH2016US004623

PATIENT
  Sex: Male

DRUGS (6)
  1. ZOMETA [Suspect]
     Active Substance: ZOLEDRONIC ACID
     Indication: PROSTATE CANCER
     Dosage: 3 MG, QMO
     Route: 042
     Dates: start: 20091111, end: 20100804
  2. XGEVA [Suspect]
     Active Substance: DENOSUMAB
     Indication: PROSTATE CANCER
     Dosage: 120 MG, QMO (MONTHLY)
     Route: 065
     Dates: start: 201103, end: 201401
  3. ZOMETA [Suspect]
     Active Substance: ZOLEDRONIC ACID
     Dosage: 4 MG, QMO
     Route: 042
     Dates: start: 20101103, end: 20110302
  4. TRELSTAR [Suspect]
     Active Substance: TRIPTORELIN PAMOATE
     Indication: PROSTATE CANCER
  5. ZOMETA [Suspect]
     Active Substance: ZOLEDRONIC ACID
     Indication: METASTASES TO BONE
     Dosage: 3 MG TO 4 MG, QMO (EVERY MONTH, MONTHLY INFUSIONS)
     Route: 042
     Dates: start: 200707
  6. TRELSTAR [Suspect]
     Active Substance: TRIPTORELIN PAMOATE
     Indication: METASTASES TO BONE
     Route: 065

REACTIONS (73)
  - Cervical spinal stenosis [Unknown]
  - Gastric ulcer [Unknown]
  - Bone lesion [Unknown]
  - Thrombocytopenia [Unknown]
  - Nodule [Unknown]
  - Bladder disorder [Unknown]
  - Urethral disorder [Unknown]
  - Tendonitis [Unknown]
  - Hepatic steatosis [Unknown]
  - Cough [Unknown]
  - Osteonecrosis of jaw [Not Recovered/Not Resolved]
  - Malignant neoplasm progression [Unknown]
  - Chest discomfort [Unknown]
  - Bronchitis [Unknown]
  - Irritable bowel syndrome [Unknown]
  - Mass [Unknown]
  - Injury [Unknown]
  - Anxiety [Unknown]
  - Metastases to bone [Unknown]
  - Leukoplakia oral [Unknown]
  - Renal cyst [Unknown]
  - Diverticulum intestinal [Unknown]
  - Sneezing [Unknown]
  - Large intestine polyp [Unknown]
  - Cholelithiasis [Unknown]
  - Proctalgia [Unknown]
  - Arthropathy [Unknown]
  - Rhinitis [Unknown]
  - Insomnia [Unknown]
  - Arthralgia [Unknown]
  - Pain in extremity [Unknown]
  - Carpal tunnel syndrome [Unknown]
  - Deformity [Unknown]
  - Dysuria [Unknown]
  - Neuralgia [Unknown]
  - Renal failure [Unknown]
  - Proctitis [Unknown]
  - Hiatus hernia [Unknown]
  - Rotator cuff syndrome [Unknown]
  - Soft tissue disorder [Unknown]
  - Intervertebral disc degeneration [Unknown]
  - Large intestine benign neoplasm [Unknown]
  - Cervical radiculopathy [Unknown]
  - Conjunctivitis [Unknown]
  - Anaemia [Unknown]
  - Myelopathy [Unknown]
  - Spinal cord oedema [Unknown]
  - Pain in jaw [Not Recovered/Not Resolved]
  - Exposed bone in jaw [Unknown]
  - Emotional distress [Unknown]
  - Intervertebral disc protrusion [Unknown]
  - Actinic keratosis [Unknown]
  - Hot flush [Unknown]
  - Acute sinusitis [Unknown]
  - Abdominal pain [Unknown]
  - Productive cough [Unknown]
  - Osteosclerosis [Unknown]
  - Osteomyelitis [Unknown]
  - Splenomegaly [Unknown]
  - Gastritis [Unknown]
  - Hepatic lesion [Unknown]
  - Gastrooesophageal reflux disease [Unknown]
  - Hyperlipidaemia [Unknown]
  - Weight increased [Unknown]
  - Fatigue [Unknown]
  - Headache [Unknown]
  - Musculoskeletal pain [Unknown]
  - Vertebral foraminal stenosis [Unknown]
  - Tooth loss [Unknown]
  - Haemorrhoids [Unknown]
  - Facet joint syndrome [Unknown]
  - Malaise [Unknown]
  - Hypoaesthesia [Unknown]
